FAERS Safety Report 6508061-0 (Version None)
Quarter: 2009Q4

REPORT INFORMATION
  Report Type: 
  Country: None (occurrence: None)
  Receive Date: 20091210
  Receipt Date: 20090519
  Transmission Date: 20100525
  Serious: Yes (Hospitalization)
  Sender: FDA-Public Use
  Company Number: CIP09001294

PATIENT
  Age: 78 Year
  Sex: Female

DRUGS (11)
  1. ACTONEL [Suspect]
     Indication: OSTEOPOROSIS
     Dosage: 35 MG WEEKLY, ORAL
     Route: 048
     Dates: start: 20061109, end: 20070101
  2. FOSAMAX [Suspect]
     Indication: OSTEOPENIA
     Dosage: 10 MG DAILY, ORAL ; 70 MG WEEKLY, ORAL
     Route: 048
     Dates: start: 19981016, end: 20020816
  3. FOSAMAX [Suspect]
     Indication: OSTEOPENIA
     Dosage: 10 MG DAILY, ORAL ; 70 MG WEEKLY, ORAL
     Route: 048
     Dates: start: 20020916, end: 20061109
  4. NORVASC [Concomitant]
  5. LESCOL /01224501/ (FLUVASTATIN) [Concomitant]
  6. MOBIC [Concomitant]
  7. FLEXERIL /00428402/ (CYCLOBENZAPRINE HYDROCHLORIDE) [Concomitant]
  8. OMEPRAZOLE [Concomitant]
  9. ADVAIR DISKUS 100/50 [Concomitant]
  10. ALBUTEROL /00139501/ (SALBUTAMOL) [Concomitant]
  11. PREDNISONE [Concomitant]

REACTIONS (9)
  - DEVICE BREAKAGE [None]
  - GINGIVAL PAIN [None]
  - JAW DISORDER [None]
  - OSTEONECROSIS [None]
  - PRIMARY SEQUESTRUM [None]
  - PROCEDURAL HEADACHE [None]
  - PROCEDURAL PAIN [None]
  - TOOTH EXTRACTION [None]
  - TOOTH FRACTURE [None]
